FAERS Safety Report 20483794 (Version 3)
Quarter: 2022Q1

REPORT INFORMATION
  Report Type: Spontaneous
  Country: DE (occurrence: DE)
  Receive Date: 20220217
  Receipt Date: 20220316
  Transmission Date: 20220423
  Serious: Yes (Hospitalization, Disabling, Other)
  Sender: FDA-Public Use
  Company Number: DE-TORRENT-00022066

PATIENT
  Age: 42 Year
  Sex: Female

DRUGS (3)
  1. TOPIRAMATE [Suspect]
     Active Substance: TOPIRAMATE
     Indication: Epilepsy
     Dosage: UNKNOWN
  2. LEVETIRACETAM [Concomitant]
     Active Substance: LEVETIRACETAM
     Indication: Epilepsy
     Dosage: 4000 MG/D
  3. LACOSAMIDE [Concomitant]
     Active Substance: LACOSAMIDE
     Indication: Epilepsy
     Dosage: 250 MG/D

REACTIONS (5)
  - Dementia [Recovered/Resolved]
  - Cognitive disorder [Recovered/Resolved]
  - Loss of libido [Recovered/Resolved]
  - Psychotic disorder [Recovered/Resolved]
  - Anxiety [Recovered/Resolved]
